FAERS Safety Report 8327538-9 (Version None)
Quarter: 2012Q2

REPORT INFORMATION
  Report Type: 
  Country: None (occurrence: None)
  Receive Date: 20120430
  Receipt Date: 20120419
  Transmission Date: 20120825
  Serious: No
  Sender: FDA-Public Use
  Company Number: 2012SP021287

PATIENT
  Age: 48 Year
  Sex: Female

DRUGS (3)
  1. SAPHRIS [Suspect]
     Indication: BIPOLAR DISORDER
     Dosage: 5 MG;HS;SL
     Route: 060
     Dates: start: 20120413
  2. DEPAKOTE [Concomitant]
  3. VALIUM [Concomitant]

REACTIONS (1)
  - TYPE I HYPERSENSITIVITY [None]
